FAERS Safety Report 22334143 (Version 2)
Quarter: 2024Q4

REPORT INFORMATION
  Report Type: Spontaneous
  Country: CA (occurrence: CA)
  Receive Date: 20230517
  Receipt Date: 20241216
  Transmission Date: 20250115
  Serious: Yes (Death, Other)
  Sender: MERCK
  Company Number: CA-009507513-2305CAN005108

PATIENT
  Age: 64 Year
  Sex: Male
  Weight: 55 kg

DRUGS (5)
  1. KEYTRUDA [Suspect]
     Active Substance: PEMBROLIZUMAB
     Indication: Lung neoplasm malignant
     Dosage: 110.0 MILLIGRAM, FREQUENCY: 1 EVERY 1 DAYS
     Route: 042
  2. KEYTRUDA [Suspect]
     Active Substance: PEMBROLIZUMAB
     Indication: Lung adenocarcinoma
     Dosage: 2 MG/ML 1 EVERY 21 DAYS
     Route: 042
  3. DIMENHYDRINATE [Concomitant]
     Active Substance: DIMENHYDRINATE
  4. SODIUM CHLORIDE [Concomitant]
     Active Substance: SODIUM CHLORIDE
  5. PANTOPRAZOLE [Concomitant]
     Active Substance: PANTOPRAZOLE

REACTIONS (2)
  - Stevens-Johnson syndrome [Fatal]
  - Toxic skin eruption [Fatal]
